FAERS Safety Report 11552497 (Version 1)
Quarter: 2015Q3

REPORT INFORMATION
  Report Type: Report from Study
  Country: US (occurrence: US)
  Receive Date: 20150925
  Receipt Date: 20150925
  Transmission Date: 20151125
  Serious: Yes (Other)
  Sender: FDA-Public Use
  Company Number: PHEH2015US018529

PATIENT
  Age: 67 Year
  Sex: Male
  Weight: 72.12 kg

DRUGS (3)
  1. GLEEVEC [Suspect]
     Active Substance: IMATINIB MESYLATE
     Indication: STOMACH MASS
     Dosage: 400 MG/KG, QD
     Route: 048
     Dates: start: 20140529
  2. GLEEVEC [Suspect]
     Active Substance: IMATINIB MESYLATE
     Indication: WEIGHT DECREASED
  3. GLEEVEC [Suspect]
     Active Substance: IMATINIB MESYLATE
     Indication: FEEDING DISORDER

REACTIONS (2)
  - Off label use [Unknown]
  - Neoplasm [Unknown]

NARRATIVE: CASE EVENT DATE: 20140529
